FAERS Safety Report 22591349 (Version 2)
Quarter: 2023Q2

REPORT INFORMATION
  Report Type: Report from Study
  Country: RU (occurrence: RU)
  Receive Date: 20230612
  Receipt Date: 20230621
  Transmission Date: 20230721
  Serious: Yes (Hospitalization)
  Sender: FDA-Public Use
  Company Number: RU-ABBVIE-5280853

PATIENT
  Age: 64 Year
  Sex: Female
  Weight: 68 kg

DRUGS (5)
  1. IBRUTINIB [Suspect]
     Active Substance: IBRUTINIB
     Indication: Follicular lymphoma
     Route: 048
     Dates: start: 20210427, end: 20230605
  2. IBRUTINIB [Suspect]
     Active Substance: IBRUTINIB
     Indication: Follicular lymphoma
     Route: 048
     Dates: start: 20230616
  3. RITUXIMAB [Suspect]
     Active Substance: RITUXIMAB
     Indication: Follicular lymphoma
     Dosage: LAST DOSE PRIOR TO EVENT ON 27 FEB 2023
     Route: 042
     Dates: start: 20210427
  4. L-tyroxin [Concomitant]
     Indication: Goitre
     Dosage: DOSAGE: 75 MCG
     Route: 048
     Dates: start: 20180215
  5. ACYCLOVIR [Concomitant]
     Active Substance: ACYCLOVIR
     Indication: Antiviral prophylaxis
     Dosage: TIME INTERVAL: 0.33333333 DAYS
     Route: 048
     Dates: start: 20230606, end: 20230614

REACTIONS (1)
  - Infection [Recovered/Resolved]

NARRATIVE: CASE EVENT DATE: 20230606
